FAERS Safety Report 20339271 (Version 3)
Quarter: 2022Q1

REPORT INFORMATION
  Report Type: Report from Study
  Country: BR (occurrence: BR)
  Receive Date: 20220117
  Receipt Date: 20220127
  Transmission Date: 20220424
  Serious: Yes (Other)
  Sender: FDA-Public Use
  Company Number: BR-NOVARTISPH-NVSC2022BR006753

PATIENT
  Age: 53 Year
  Sex: Female
  Weight: 66.6 kg

DRUGS (14)
  1. SECUKINUMAB [Suspect]
     Active Substance: SECUKINUMAB
     Indication: Ankylosing spondylitis
     Dosage: CODE NOT BROKEN
     Route: 042
     Dates: start: 20200925
  2. INVESTIGATIONAL PRODUCT [Suspect]
     Active Substance: INVESTIGATIONAL PRODUCT
     Indication: Ankylosing spondylitis
     Dosage: CODE NOT BROKEN
     Route: 042
     Dates: start: 20200925
  3. PLACEBO [Suspect]
     Active Substance: UNSPECIFIED INGREDIENT
     Indication: Ankylosing spondylitis
     Dosage: CODE NOT BROKEN
     Route: 042
     Dates: start: 20200925
  4. SECUKINUMAB [Suspect]
     Active Substance: SECUKINUMAB
     Indication: Axial spondyloarthritis
  5. INVESTIGATIONAL PRODUCT [Suspect]
     Active Substance: INVESTIGATIONAL PRODUCT
     Indication: Axial spondyloarthritis
  6. PLACEBO [Suspect]
     Active Substance: UNSPECIFIED INGREDIENT
     Indication: Axial spondyloarthritis
  7. SECUKINUMAB [Suspect]
     Active Substance: SECUKINUMAB
     Indication: Ankylosing spondylitis
     Dosage: 100 ML
     Route: 042
     Dates: start: 20210219
  8. SECUKINUMAB [Suspect]
     Active Substance: SECUKINUMAB
     Indication: Axial spondyloarthritis
  9. METHOTREXATE [Concomitant]
     Active Substance: METHOTREXATE
     Indication: Spondylitis
     Dosage: UNK
     Route: 065
     Dates: start: 202002
  10. FOLIC ACID [Concomitant]
     Active Substance: FOLIC ACID
     Indication: Prophylaxis
     Dosage: UNK
     Route: 065
     Dates: start: 20190926
  11. CARISOPRODOL [Concomitant]
     Active Substance: CARISOPRODOL
     Indication: Spondylitis
     Dosage: UNK
     Route: 065
     Dates: start: 202006
  12. ACETAMINOPHEN [Concomitant]
     Active Substance: ACETAMINOPHEN
     Indication: Spondylitis
     Dosage: UNK
     Route: 065
     Dates: start: 202006
  13. CAFFEINE [Concomitant]
     Active Substance: CAFFEINE
     Indication: Spondylitis
     Dosage: UNK
     Route: 065
     Dates: start: 202006
  14. DICLOFENAC SODIUM [Concomitant]
     Active Substance: DICLOFENAC SODIUM
     Indication: Spondylitis
     Dosage: UNK
     Route: 065
     Dates: start: 202006

REACTIONS (1)
  - Breast neoplasm [Not Recovered/Not Resolved]

NARRATIVE: CASE EVENT DATE: 20210813
